FAERS Safety Report 6908218-0 (Version None)
Quarter: 2010Q3

REPORT INFORMATION
  Report Type: 
  Country: None (occurrence: None)
  Receive Date: 20100708
  Receipt Date: 20100320
  Transmission Date: 20110219
  Serious: Yes (Other)
  Sender: FDA-Public Use
  Company Number: 2008004078

PATIENT
  Age: 50 Year
  Sex: Female
  Weight: 51.3 kg

DRUGS (13)
  1. CHANTIX [Suspect]
     Indication: SMOKING CESSATION THERAPY
     Dosage: 0.5 MG, 1X/DAY; 1 MG, 2X/DAY
     Dates: start: 20071225, end: 20071201
  2. CHANTIX [Suspect]
     Indication: SMOKING CESSATION THERAPY
     Dosage: 0.5 MG, 1X/DAY; 1 MG, 2X/DAY
     Dates: start: 20071201
  3. GABAPENTIN [Concomitant]
  4. ELMIRON [Concomitant]
  5. HYDROXYZINE [Concomitant]
  6. CLONAZEPAM [Concomitant]
  7. AMITRIPTYLINR (AMITRIPTYLINE) [Concomitant]
  8. CALCIUM (CALCIUM) [Concomitant]
  9. MAGNESIUM (MAGNESIUM) [Concomitant]
  10. VITAMIN B [Concomitant]
  11. ASCORBIC ACID [Concomitant]
  12. FIORICET [Concomitant]
  13. TIZANIDINE HCL [Concomitant]

REACTIONS (4)
  - ADVERSE DRUG REACTION [None]
  - FATIGUE [None]
  - SOMNOLENCE [None]
  - VISUAL IMPAIRMENT [None]
